FAERS Safety Report 4635680-9 (Version None)
Quarter: 2005Q2

REPORT INFORMATION
  Report Type: 
  Country: None (occurrence: None)
  Receive Date: 20050414
  Receipt Date: 20050331
  Transmission Date: 20051028
  Serious: Yes (Hospitalization)
  Sender: FDA-Public Use
  Company Number: HQWYE597531MAR05

PATIENT
  Age: 82 Year
  Sex: Female

DRUGS (7)
  1. EUPANTOL [Suspect]
     Dosage: 20 MG 1X PER 1 DAY
     Route: 048
  2. AMLOR (AMLODIPINE BESILATE,) [Suspect]
     Dosage: SOME DOSE FORM SOMETIMES
     Route: 048
  3. ATACAND [Suspect]
     Dosage: 8 MG 1X PER 1 DAY
     Route: 048
     Dates: end: 20050221
  4. FENOFIBRATE [Suspect]
     Dosage: 160 MG 1X PER 1 DAY
     Route: 048
  5. NIMESULIDE (NIMESULIDE,) [Suspect]
     Dosage: 150 MG 1X PER 1 DAY
     Route: 048
  6. NOCTRAN 10 (ACEPROMAZINE/ACEPROMETAZINE/CLORAZEPATE DIPOTASSIUM) [Suspect]
     Dosage: 20 MG 1X PER 1 DAY
     Route: 048
     Dates: end: 20050215
  7. COLCHIMAX (COLCHICINE/DICYCLOVERINE HCL) [Concomitant]

REACTIONS (7)
  - ANAEMIA [None]
  - ANTINUCLEAR ANTIBODY POSITIVE [None]
  - ARTHRALGIA [None]
  - BLOOD CREATINE INCREASED [None]
  - LUPUS-LIKE SYNDROME [None]
  - PAIN IN EXTREMITY [None]
  - RED BLOOD CELL SEDIMENTATION RATE INCREASED [None]
